FAERS Safety Report 13080244 (Version 3)
Quarter: 2017Q4

REPORT INFORMATION
  Report Type: Report from Study
  Country: BR (occurrence: BR)
  Receive Date: 20170103
  Receipt Date: 20171213
  Transmission Date: 20180320
  Serious: Yes (Other)
  Sender: FDA-Public Use
  Company Number: BR-JNJFOC-20161011461

PATIENT
  Age: 63 Year
  Sex: Male

DRUGS (6)
  1. COMITAL [Concomitant]
     Route: 065
  2. CICLOSPORIN [Concomitant]
     Active Substance: CYCLOSPORINE
     Route: 065
  3. LAMOTRIGINE. [Concomitant]
     Active Substance: LAMOTRIGINE
     Route: 065
  4. STELARA [Suspect]
     Active Substance: USTEKINUMAB
     Indication: PSORIASIS
     Route: 058
     Dates: start: 201706
  5. STELARA [Suspect]
     Active Substance: USTEKINUMAB
     Indication: PSORIASIS
     Route: 058
     Dates: start: 20150813, end: 201604
  6. GARDENAL [Concomitant]
     Active Substance: PHENOBARBITAL
     Route: 065

REACTIONS (5)
  - Psoriasis [Unknown]
  - Upper limb fracture [Unknown]
  - Therapeutic response decreased [Unknown]
  - Fall [Unknown]
  - Radial nerve injury [Recovering/Resolving]

NARRATIVE: CASE EVENT DATE: 2016
